FAERS Safety Report 16213830 (Version 1)
Quarter: 2019Q2

REPORT INFORMATION
  Report Type: Spontaneous
  Country: US (occurrence: US)
  Receive Date: 20190418
  Receipt Date: 20190418
  Transmission Date: 20190711
  Serious: No
  Sender: FDA-Public Use
  Company Number: US-BAUSCH-BL-2018-016249

PATIENT
  Age: 78 Year
  Sex: Female
  Weight: 90.8 kg

DRUGS (2)
  1. PRESERVISION AREDS 2 FORMULA SOFT GELS [Suspect]
     Active Substance: MINERALS\VITAMINS
     Indication: OPHTHALMOLOGICAL EXAMINATION
     Dosage: ABOUT 10 DAYS AGO
     Route: 048
     Dates: start: 201805
  2. LOTEMAX [Suspect]
     Active Substance: LOTEPREDNOL ETABONATE
     Indication: OPHTHALMOLOGICAL EXAMINATION
     Route: 047
     Dates: start: 201805

REACTIONS (1)
  - Skin wrinkling [Not Recovered/Not Resolved]

NARRATIVE: CASE EVENT DATE: 2018
